FAERS Safety Report 16013847 (Version 6)
Quarter: 2020Q3

REPORT INFORMATION
  Report Type: Spontaneous
  Country: US (occurrence: US)
  Receive Date: 20190227
  Receipt Date: 20200717
  Transmission Date: 20201102
  Serious: No
  Sender: FDA-Public Use
  Company Number: US-SA-2019SA053196

PATIENT

DRUGS (1)
  1. CEREZYME [Suspect]
     Active Substance: IMIGLUCERASE
     Indication: GAUCHER^S DISEASE
     Dosage: 3600 U, QOW
     Route: 041
     Dates: start: 20130828

REACTIONS (4)
  - Illness [Unknown]
  - Pain in extremity [Unknown]
  - Product dose omission issue [Unknown]
  - Weight decreased [Unknown]
